FAERS Safety Report 8370252-4 (Version None)
Quarter: 2012Q2

REPORT INFORMATION
  Report Type: 
  Country: None (occurrence: None)
  Receive Date: 20120518
  Receipt Date: 20120511
  Transmission Date: 20120825
  Serious: Yes (Other)
  Sender: FDA-Public Use
  Company Number: US-PFIZER INC-2012116150

PATIENT
  Sex: Male

DRUGS (2)
  1. CARDURA [Suspect]
     Indication: PROSTATOMEGALY
     Dosage: UNK
  2. HYTRIN [Suspect]
     Indication: PROSTATOMEGALY
     Dosage: UNK

REACTIONS (3)
  - MICTURITION DISORDER [None]
  - RENAL DISORDER [None]
  - POLLAKIURIA [None]
